FAERS Safety Report 11258612 (Version 1)
Quarter: 2015Q2

REPORT INFORMATION
  Report Type: Spontaneous
  Country: US (occurrence: None)
  Receive Date: 20150617
  Receipt Date: 20150617
  Transmission Date: 20150821
  Serious: No
  Sender: FDA-Public Use
  Company Number: 2014TASUS000539

PATIENT
  Age: 56 Year
  Sex: Female
  Weight: 99.8 kg

DRUGS (7)
  1. SYNTHROID [Concomitant]
     Active Substance: LEVOTHYROXINE SODIUM
  2. LORZONE [Concomitant]
     Active Substance: CHLORZOXAZONE
  3. HETLIOZ [Suspect]
     Active Substance: TASIMELTEON
     Indication: CIRCADIAN RHYTHM SLEEP DISORDER
     Route: 048
     Dates: start: 201410
  4. MOBIC [Concomitant]
     Active Substance: MELOXICAM
  5. TOPAMAX [Concomitant]
     Active Substance: TOPIRAMATE
  6. NEURONTIN [Concomitant]
     Active Substance: GABAPENTIN
  7. TRAMADOL (TRAMADOL HYDROCHLORIDE) [Concomitant]
     Active Substance: TRAMADOL HYDROCHLORIDE

REACTIONS (3)
  - Pruritus [None]
  - Headache [None]
  - Local swelling [None]

NARRATIVE: CASE EVENT DATE: 201410
